FAERS Safety Report 19199709 (Version 3)
Quarter: 2021Q2

REPORT INFORMATION
  Report Type: Spontaneous
  Country: US (occurrence: US)
  Receive Date: 20210429
  Receipt Date: 20210525
  Transmission Date: 20210717
  Serious: Yes (Other)
  Sender: FDA-Public Use
  Company Number: US-ORGANON-O2104USA001881

PATIENT
  Age: 20 Year
  Sex: Female

DRUGS (1)
  1. NEXPLANON [Suspect]
     Active Substance: ETONOGESTREL
     Indication: CONTRACEPTION
     Dosage: 1 ROD EVERY 3 YEARS
     Route: 059
     Dates: end: 202012

REACTIONS (4)
  - Device issue [Recovered/Resolved]
  - Pain [Unknown]
  - Complication of device removal [Recovered/Resolved]
  - Rotator cuff repair [Unknown]

NARRATIVE: CASE EVENT DATE: 202012
